FAERS Safety Report 9382380 (Version 1)
Quarter: 2013Q3

REPORT INFORMATION
  Report Type: Spontaneous
  Country: US (occurrence: US)
  Receive Date: 20130703
  Receipt Date: 20130703
  Transmission Date: 20140515
  Serious: No
  Sender: FDA-Public Use
  Company Number: US-009507513-1307USA001900

PATIENT
  Sex: Female

DRUGS (3)
  1. COPPERTONE OIL FREE SPF 30 [Suspect]
     Indication: PRODUCT USED FOR UNKNOWN INDICATION
     Dosage: UNK, UNKNOWN
     Route: 061
  2. COPPERTONE OIL FREE SPF 30 [Suspect]
     Dosage: UNK
  3. COPPERTONE OIL FREE SPF 30 [Suspect]
     Dosage: UNK

REACTIONS (2)
  - Sunburn [Unknown]
  - Expired drug administered [Unknown]
